FAERS Safety Report 9277471 (Version 1)
Quarter: 2013Q2

REPORT INFORMATION
  Report Type: Spontaneous
  Country: US (occurrence: None)
  Receive Date: 20130503
  Receipt Date: 20130503
  Transmission Date: 20140414
  Serious: Yes (Hospitalization)
  Sender: FDA-Public Use
  Company Number: None

PATIENT
  Age: 10 Year
  Sex: 0
  Weight: 33.57 kg

DRUGS (1)
  1. VYVANSE [Suspect]
     Indication: ATTENTION DEFICIT/HYPERACTIVITY DISORDER
     Dosage: 1/2 OF 70MG TABLET 1
     Dates: start: 20130502, end: 20130502

REACTIONS (3)
  - Dizziness [None]
  - Dyspnoea [None]
  - Hypoaesthesia [None]
